FAERS Safety Report 13405417 (Version 2)
Quarter: 2017Q2

REPORT INFORMATION
  Report Type: Spontaneous
  Country: US (occurrence: US)
  Receive Date: 20170405
  Receipt Date: 20170427
  Transmission Date: 20170830
  Serious: No
  Sender: FDA-Public Use
  Company Number: US-PFIZER INC-2017139822

PATIENT
  Age: 63 Year
  Sex: Male

DRUGS (19)
  1. THERAGRAN [Concomitant]
     Active Substance: VITAMINS
     Dosage: TAKE 1 TABLET BY MOUTH, DAILY
     Route: 048
  2. CELLCEPT [Concomitant]
     Active Substance: MYCOPHENOLATE MOFETIL\MYCOPHENOLATE MOFETIL HYDROCHLORIDE
     Dosage: 2 TABLETS (1,000 MG TOTAL) BY MOUTH TWO (2) TIMES A DAY
     Route: 048
  3. SYMBICORT [Concomitant]
     Active Substance: BUDESONIDE\FORMOTEROL FUMARATE DIHYDRATE
     Dosage: 2 PUFFS 2 (TWO) TIMES A DAY
     Route: 055
  4. LOTRISONE [Concomitant]
     Active Substance: BETAMETHASONE DIPROPIONATE\CLOTRIMAZOLE
     Dosage: APPLY 1 APPLICATION TOPICALLY TWO (2) TIMES A DAY AS NEEDED
     Route: 061
  5. NEXIUM [Concomitant]
     Active Substance: ESOMEPRAZOLE MAGNESIUM
     Dosage: 1 CAPSULE (40 MG TOTAL) BY MOUTH NIGHTLY
     Route: 048
  6. COQ 10 [Concomitant]
     Active Substance: UBIDECARENONE
     Dosage: 200 MG, DAILY
     Route: 048
  7. HYDRODIURIL [Concomitant]
     Active Substance: HYDROCHLOROTHIAZIDE
     Dosage: 1 TABLET (25 MG TOTAL) BY MOUTH DAILY
     Route: 048
  8. REVATIO [Suspect]
     Active Substance: SILDENAFIL CITRATE
     Indication: PULMONARY HYPERTENSION
     Dosage: 20 MG, 2X/DAY
     Route: 048
  9. TESSALON [Concomitant]
     Active Substance: BENZONATATE
     Indication: COUGH
     Dosage: 1 CAPSULE (100 MG TOTAL) BY MOUTH THREE (3) TIMES A DAY AS NEEDED
     Route: 048
  10. XALATAN [Concomitant]
     Active Substance: LATANOPROST
     Dosage: 1 DROP TO THE RIGHT EYE NIGHTLY
     Route: 047
  11. COZAAR [Concomitant]
     Active Substance: LOSARTAN POTASSIUM
     Dosage: 1 TABLET (50 MG TOTAL) BY MOUTH DAILY
     Route: 048
  12. PREDNISONE. [Concomitant]
     Active Substance: PREDNISONE
     Dosage: 7.5 MG, DAILY
  13. NORVASC [Concomitant]
     Active Substance: AMLODIPINE BESYLATE
     Dosage: 10 MG, DAILY
     Route: 048
  14. GUAIFENESIN AC [Concomitant]
     Active Substance: CODEINE PHOSPHATE\GUAIFENESIN
     Indication: COUGH
     Dosage: 5 ML BY MOUTH THREE (3) TIMES A DAY AS NEEDED
     Route: 048
  15. PREVNAR 13 [Concomitant]
     Active Substance: PNEUMOCOCCAL 13-VALENT CONJUGATE VACCINE
     Indication: IMMUNISATION
     Dosage: 0.5 ML, SINGLE
     Route: 030
  16. PROAIR HFA [Concomitant]
     Active Substance: ALBUTEROL SULFATE
     Indication: WHEEZING
     Dosage: 2 PUFFS EVERY SIX (6) HOURS NEEDED
     Route: 055
  17. NAPROXEN. [Concomitant]
     Active Substance: NAPROXEN
     Dosage: TAKE 375 MG BY MOUTH TWO (2) TIMES A DAY AS NEEDED
     Route: 048
  18. MYCOSTATIN [Concomitant]
     Active Substance: NYSTATIN
     Dosage: 100,000 UNIT/ML SUSPENSION
  19. PNEUMOVAX 23 [Concomitant]
     Active Substance: PNEUMOCOCCAL VACCINE, POLYVALENT 23
     Indication: IMMUNISATION
     Dosage: 0.5 ML, SINGLE
     Route: 058

REACTIONS (8)
  - Intentional product use issue [Unknown]
  - Dyspnoea exertional [Unknown]
  - Dyspepsia [Unknown]
  - Gastrooesophageal reflux disease [Unknown]
  - Cough [Unknown]
  - Raynaud^s phenomenon [Unknown]
  - Condition aggravated [Unknown]
  - Dysphagia [Unknown]
